FAERS Safety Report 13665127 (Version 1)
Quarter: 2017Q2

REPORT INFORMATION
  Report Type: Spontaneous
  Country: US (occurrence: US)
  Receive Date: 20170619
  Receipt Date: 20170619
  Transmission Date: 20170830
  Serious: Yes (Disabling)
  Sender: FDA-Public Use
  Company Number: None

PATIENT
  Age: 58 Year
  Sex: Female
  Weight: 56.25 kg

DRUGS (3)
  1. KLONOPIN [Suspect]
     Active Substance: CLONAZEPAM
     Indication: POST-TRAUMATIC STRESS DISORDER
     Dates: start: 19911001, end: 20130903
  2. OMEGA DHA EPA [Concomitant]
  3. MAGNESIUM [Concomitant]
     Active Substance: MAGNESIUM

REACTIONS (17)
  - Panic reaction [None]
  - Mental impairment [None]
  - Loss of personal independence in daily activities [None]
  - Drug ineffective [None]
  - Feeding disorder [None]
  - Hallucination [None]
  - Depression [None]
  - Bone pain [None]
  - Emotional disorder [None]
  - Weight decreased [None]
  - Insomnia [None]
  - Abasia [None]
  - Drug withdrawal syndrome [None]
  - Therapy cessation [None]
  - Malaise [None]
  - Alopecia [None]
  - Drug tolerance increased [None]

NARRATIVE: CASE EVENT DATE: 20140301
